FAERS Safety Report 19471548 (Version 1)
Quarter: 2021Q2

REPORT INFORMATION
  Report Type: Spontaneous
  Country: US (occurrence: US)
  Receive Date: 20210629
  Receipt Date: 20210629
  Transmission Date: 20210717
  Serious: Yes (Hospitalization)
  Sender: FDA-Public Use
  Company Number: None

PATIENT
  Age: 3 Year
  Sex: Male
  Weight: 13.2 kg

DRUGS (4)
  1. CARBOPLATIN. [Suspect]
     Active Substance: CARBOPLATIN
     Dates: end: 20210611
  2. ETOPOSIDE (VP?16) [Suspect]
     Active Substance: ETOPOSIDE
     Dates: end: 20210611
  3. MELPHALAN. [Suspect]
     Active Substance: MELPHALAN
     Dates: end: 20210610
  4. G?CSF (FILGRASTIM, AMGEN) [Suspect]
     Active Substance: FILGRASTIM
     Dates: end: 20210615

REACTIONS (6)
  - Venoocclusive liver disease [None]
  - Renal replacement therapy [None]
  - Bacteraemia [None]
  - Venoocclusive disease [None]
  - Sepsis [None]
  - Fluid overload [None]

NARRATIVE: CASE EVENT DATE: 20210621
